FAERS Safety Report 25234834 (Version 1)
Quarter: 2025Q2

REPORT INFORMATION
  Report Type: Spontaneous
  Country: NO (occurrence: NO)
  Receive Date: 20250424
  Receipt Date: 20250424
  Transmission Date: 20250716
  Serious: Yes (Hospitalization)
  Sender: TAKEDA
  Company Number: None

PATIENT
  Age: 66 Year
  Sex: Male

DRUGS (3)
  1. ENTYVIO [Interacting]
     Active Substance: VEDOLIZUMAB
     Indication: Colitis ulcerative
     Dates: start: 20250116, end: 20250228
  2. STELARA [Interacting]
     Active Substance: USTEKINUMAB
     Indication: Colitis ulcerative
  3. STELARA [Interacting]
     Active Substance: USTEKINUMAB
     Dosage: 260 MILLIGRAM, Q4WEEKS
     Dates: start: 20240612, end: 20250228

REACTIONS (3)
  - Anaemia [Not Recovered/Not Resolved]
  - Reticulocyte count decreased [Not Recovered/Not Resolved]
  - Off label use [Unknown]

NARRATIVE: CASE EVENT DATE: 20250228
